FAERS Safety Report 9685724 (Version 2)
Quarter: 2013Q4

REPORT INFORMATION
  Report Type: Spontaneous
  Country: US (occurrence: US)
  Receive Date: 20131113
  Receipt Date: 20131203
  Transmission Date: 20140711
  Serious: No
  Sender: FDA-Public Use
  Company Number: US-BAYER-2013-129860

PATIENT
  Sex: Female

DRUGS (1)
  1. CLIMARA [Suspect]
     Dosage: ONCE PER WEEK
     Route: 062
     Dates: start: 20131007

REACTIONS (3)
  - Extra dose administered [None]
  - Product adhesion issue [None]
  - Hot flush [Not Recovered/Not Resolved]
